FAERS Safety Report 6959611-1 (Version None)
Quarter: 2010Q3

REPORT INFORMATION
  Report Type: 
  Country: None (occurrence: None)
  Receive Date: 20100827
  Receipt Date: 20100818
  Transmission Date: 20110219
  Serious: Yes (Death)
  Sender: FDA-Public Use
  Company Number: 2010EU004230

PATIENT
  Age: 60 Year
  Sex: Male
  Weight: 82 kg

DRUGS (1)
  1. MYCAMINE [Suspect]
     Indication: ANTIFUNGAL TREATMENT
     Dosage: 100 MG, UID/QD, IV NOS
     Route: 042
     Dates: start: 20100712, end: 20100727

REACTIONS (9)
  - ASPARTATE AMINOTRANSFERASE INCREASED [None]
  - BLOOD ALKALINE PHOSPHATASE INCREASED [None]
  - BLOOD BILIRUBIN INCREASED [None]
  - BLOOD CREATININE INCREASED [None]
  - FUNGAL INFECTION [None]
  - GAMMA-GLUTAMYLTRANSFERASE INCREASED [None]
  - LUNG DISORDER [None]
  - PNEUMONIA KLEBSIELLA [None]
  - SEPTIC SHOCK [None]
